FAERS Safety Report 8604393-0 (Version None)
Quarter: 2012Q3

REPORT INFORMATION
  Report Type: 
  Country: None (occurrence: None)
  Receive Date: 20120820
  Receipt Date: 20120809
  Transmission Date: 20120928
  Serious: Yes (Other)
  Sender: FDA-Public Use
  Company Number: US-JNJFOC-20120806506

PATIENT
  Sex: Female
  Weight: 74.84 kg

DRUGS (5)
  1. PREDNISONE TAB [Concomitant]
     Indication: SARCOIDOSIS
     Route: 048
  2. METHOTREXATE [Concomitant]
     Indication: RHEUMATOID ARTHRITIS
     Route: 048
  3. PROTONIX [Concomitant]
     Indication: GASTROOESOPHAGEAL REFLUX DISEASE
     Route: 048
  4. REMICADE [Suspect]
     Indication: RHEUMATOID ARTHRITIS
     Route: 042
     Dates: end: 20120509
  5. SINGULAIR [Concomitant]
     Indication: SARCOIDOSIS
     Route: 055

REACTIONS (5)
  - ERYTHEMA [None]
  - LUPUS-LIKE SYNDROME [None]
  - ANTINUCLEAR ANTIBODY POSITIVE [None]
  - MASS [None]
  - CELLULITIS [None]
